FAERS Safety Report 19027648 (Version 1)
Quarter: 2021Q1

REPORT INFORMATION
  Report Type: Spontaneous
  Country: US (occurrence: US)
  Receive Date: 20210318
  Receipt Date: 20210318
  Transmission Date: 20210420
  Serious: No
  Sender: FDA-Public Use
  Company Number: US-DSJP-DSU-2021-107075

PATIENT
  Age: 33 Year
  Sex: Female

DRUGS (3)
  1. TURALIO [Suspect]
     Active Substance: PEXIDARTINIB HYDROCHLORIDE
     Dosage: 1 CAPSULE IN THE AM AND 2 CAPSULES IN THE PM/ORAL , BID
     Route: 048
     Dates: start: 2020, end: 202012
  2. TURALIO [Suspect]
     Active Substance: PEXIDARTINIB HYDROCHLORIDE
     Dosage: ONE CAPSULE IN THE AM AND ONE IN THE PM/ORAL , BID
     Route: 048
     Dates: start: 202012
  3. TURALIO [Suspect]
     Active Substance: PEXIDARTINIB HYDROCHLORIDE
     Indication: GIANT CELL TUMOUR OF TENDON SHEATH
     Dosage: 2 DF, BID
     Route: 048
     Dates: start: 202010, end: 2020

REACTIONS (9)
  - Dyspepsia [Unknown]
  - Fatigue [Unknown]
  - Malaise [Unknown]
  - Frequent bowel movements [Unknown]
  - Abdominal distension [Unknown]
  - Abdominal pain upper [Unknown]
  - Periorbital swelling [Unknown]
  - Faeces soft [Unknown]
  - Face oedema [Recovering/Resolving]

NARRATIVE: CASE EVENT DATE: 2020
